FAERS Safety Report 5694783-0 (Version None)
Quarter: 2008Q2

REPORT INFORMATION
  Report Type: 
  Country: None (occurrence: None)
  Receive Date: 20080404
  Receipt Date: 20080327
  Transmission Date: 20081010
  Serious: Yes (Disabling)
  Sender: FDA-Public Use
  Company Number: US-JNJFOC-20060204962

PATIENT
  Sex: Male

DRUGS (3)
  1. RISPERDAL [Suspect]
     Indication: DRUG USE FOR UNKNOWN INDICATION
  2. ZYPREXA [Suspect]
     Indication: DRUG USE FOR UNKNOWN INDICATION
  3. SEROQUEL [Suspect]
     Indication: DRUG USE FOR UNKNOWN INDICATION

REACTIONS (10)
  - ADVERSE EVENT [None]
  - AGGRESSION [None]
  - BLOOD GLUCOSE INCREASED [None]
  - COUGH [None]
  - DYSPNOEA [None]
  - GASTROENTERITIS [None]
  - INFLUENZA [None]
  - PANCREATITIS [None]
  - SLEEP TERROR [None]
  - WEIGHT INCREASED [None]
